FAERS Safety Report 6737557-1 (Version None)
Quarter: 2010Q2

REPORT INFORMATION
  Report Type: 
  Country: None (occurrence: None)
  Receive Date: 20100519
  Receipt Date: 20100506
  Transmission Date: 20101027
  Serious: Yes (Hospitalization)
  Sender: FDA-Public Use
  Company Number: DSA_42842_2010

PATIENT
  Sex: Female

DRUGS (7)
  1. BUPROPION HYDROCHLORIDE [Suspect]
     Indication: DEPRESSION
     Dosage: (150 MG QD ORAL)
     Route: 048
     Dates: start: 20100128, end: 20100206
  2. SYMBICORT [Concomitant]
  3. LYRICA [Concomitant]
  4. ATROVENT [Concomitant]
  5. TOVIAZ [Concomitant]
  6. MIRTAZAPINE [Concomitant]
  7. FOLACIN [Concomitant]

REACTIONS (2)
  - ECZEMA [None]
  - HYPERSENSITIVITY [None]
